FAERS Safety Report 26145196 (Version 1)
Quarter: 2025Q4

REPORT INFORMATION
  Report Type: Spontaneous
  Country: US (occurrence: None)
  Receive Date: 20251210
  Receipt Date: 20251210
  Transmission Date: 20260117
  Serious: Yes (Hospitalization, Other)
  Sender: FDA-CTU
  Company Number: None

PATIENT
  Age: 52 Year
  Sex: Male
  Weight: 145.7 kg

DRUGS (1)
  1. OBINUTUZUMAB [Suspect]
     Active Substance: OBINUTUZUMAB
     Dosage: OTHER FREQUENCY : ONCE;
     Route: 042

REACTIONS (8)
  - Feeling hot [None]
  - Flushing [None]
  - Infusion related reaction [None]
  - Chills [None]
  - Therapy interrupted [None]
  - Arthralgia [None]
  - Chest discomfort [None]
  - Malaise [None]

NARRATIVE: CASE EVENT DATE: 20250911
